FAERS Safety Report 24770591 (Version 2)
Quarter: 2024Q4

REPORT INFORMATION
  Report Type: Report from Study
  Country: DE (occurrence: DE)
  Receive Date: 20241224
  Receipt Date: 20241226
  Transmission Date: 20250115
  Serious: Yes (Other)
  Sender: ABBVIE
  Company Number: DE-ABBVIE-6047409

PATIENT
  Age: 81 Year
  Sex: Female

DRUGS (1)
  1. FOSCARBIDOPA\FOSLEVODOPA [Suspect]
     Active Substance: FOSCARBIDOPA\FOSLEVODOPA
     Indication: Parkinson^s disease
     Dosage: CRN: 0.26 ML/H, CR: 0.55 ML/H, CRH: 0.59 ML/H, ED: 0.15 ML?MEDIKAMENT
     Route: 058
     Dates: start: 20241016

REACTIONS (5)
  - Infusion site abscess [Recovering/Resolving]
  - Infusion site nodule [Unknown]
  - Infusion site inflammation [Unknown]
  - Infusion site induration [Unknown]
  - Infusion site infection [Recovering/Resolving]

NARRATIVE: CASE EVENT DATE: 20240101
